FAERS Safety Report 9440650 (Version 2)
Quarter: 2013Q3

REPORT INFORMATION
  Report Type: Spontaneous
  Country: US (occurrence: None)
  Receive Date: 20130801
  Receipt Date: 20130828
  Transmission Date: 20140515
  Serious: Yes (Other)
  Sender: FDA-Public Use
  Company Number: JPI-P-034152

PATIENT
  Age: 48 Year
  Sex: Female

DRUGS (1)
  1. XYREM [Suspect]
     Indication: CATAPLEXY
     Dosage: 3 GM (1.5 GM, 2 IN 1 D), ORAL
     Route: 048
     Dates: start: 20100820

REACTIONS (10)
  - Confusional state [None]
  - Dizziness [None]
  - Somnolence [None]
  - Disorientation [None]
  - Concussion [None]
  - Fall [None]
  - Head injury [None]
  - Somnolence [None]
  - Dizziness [None]
  - Hypersomnia [None]
